FAERS Safety Report 8244979-9 (Version None)
Quarter: 2012Q1

REPORT INFORMATION
  Report Type: 
  Country: None (occurrence: None)
  Receive Date: 20120329
  Receipt Date: 20111107
  Transmission Date: 20120608
  Serious: No
  Sender: FDA-Public Use
  Company Number: US-MYLANLABS-2011S1023036

PATIENT
  Age: 83 Year
  Sex: Female

DRUGS (5)
  1. FENTANYL-100 [Suspect]
     Indication: BACK PAIN
     Dosage: CHANGED Q72H
     Route: 062
     Dates: start: 20110901
  2. DILTIAZEM HCL [Concomitant]
     Indication: HYPERTENSION
     Route: 048
  3. VITAMIN B-12 [Concomitant]
     Route: 048
  4. ASPIRIN [Concomitant]
     Route: 048
  5. PROAIR HFA [Concomitant]
     Indication: ASTHMA

REACTIONS (1)
  - APPLICATION SITE HAEMATOMA [None]
